FAERS Safety Report 17678485 (Version 1)
Quarter: 2020Q2

REPORT INFORMATION
  Report Type: Spontaneous
  Country: US (occurrence: US)
  Receive Date: 20200417
  Receipt Date: 20200417
  Transmission Date: 20200714
  Serious: No
  Sender: FDA-Public Use
  Company Number: US-LUPIN PHARMACEUTICALS INC.-2019-07473

PATIENT
  Sex: Female
  Weight: 103.4 kg

DRUGS (1)
  1. MY WAY [Suspect]
     Active Substance: LEVONORGESTREL
     Indication: POST COITAL CONTRACEPTION
     Dosage: 2 DOSAGE FORM, SINGLE
     Route: 065
     Dates: start: 20191107, end: 20191107

REACTIONS (2)
  - Somnolence [Unknown]
  - Extra dose administered [Unknown]
